FAERS Safety Report 4535880-2 (Version None)
Quarter: 2004Q4

REPORT INFORMATION
  Report Type: 
  Country: None (occurrence: None)
  Receive Date: 20041223
  Receipt Date: 20041105
  Transmission Date: 20050328
  Serious: Yes (Other)
  Sender: FDA-Public Use
  Company Number: PHBS2004JP15077

PATIENT
  Age: 54 Year
  Sex: Male
  Weight: 77 kg

DRUGS (5)
  1. LAMISIL [Suspect]
     Indication: NAIL TINEA
  2. ADALAT [Concomitant]
     Indication: HYPERTENSION
     Dosage: 5 MG/DAY
     Route: 048
     Dates: start: 20020105, end: 20041213
  3. LIPITOR [Concomitant]
     Indication: HYPERLIPIDAEMIA
     Dosage: UNK, UNK
     Route: 048
     Dates: start: 20020105, end: 20041213
  4. GASTER D [Concomitant]
     Indication: GASTRIC ULCER
     Dosage: 20 - 40 MG/DAY
     Route: 048
     Dates: start: 20020105
  5. ADALAT [Concomitant]
     Dosage: 20 - 40 MG/D
     Route: 048
     Dates: start: 20020105, end: 20041213

REACTIONS (7)
  - ARRHYTHMIA [None]
  - ELECTROCARDIOGRAM ST-T CHANGE [None]
  - ELECTROCARDIOGRAM T WAVE ABNORMAL [None]
  - HEART RATE IRREGULAR [None]
  - PALPITATIONS [None]
  - TACHYARRHYTHMIA [None]
  - VENTRICULAR EXTRASYSTOLES [None]
